FAERS Safety Report 6114950-1 (Version None)
Quarter: 2009Q1

REPORT INFORMATION
  Report Type: 
  Country: None (occurrence: None)
  Receive Date: 20090313
  Receipt Date: 20090303
  Transmission Date: 20090719
  Serious: Yes (Hospitalization, Other)
  Sender: FDA-Public Use
  Company Number: DE-ELI_LILLY_AND_COMPANY-DE200812003219

PATIENT
  Age: 15 Year
  Sex: Male
  Weight: 76.2 kg

DRUGS (2)
  1. STRATTERA [Suspect]
     Indication: ATTENTION DEFICIT/HYPERACTIVITY DISORDER
     Dosage: UNK, UNKNOWN
     Route: 065
     Dates: start: 20070313, end: 20080620
  2. STRATTERA [Suspect]
     Dosage: 40 MG, DAILY (1/D)
     Route: 048
     Dates: start: 20081021, end: 20090120

REACTIONS (3)
  - INFECTIOUS MONONUCLEOSIS [None]
  - LEUKOPENIA [None]
  - THROMBOCYTOPENIA [None]
